FAERS Safety Report 7946398-9 (Version None)
Quarter: 2011Q4

REPORT INFORMATION
  Report Type: 
  Country: None (occurrence: None)
  Receive Date: 20111129
  Receipt Date: 20111122
  Transmission Date: 20120403
  Serious: Yes (Other)
  Sender: FDA-Public Use
  Company Number: GB-MERCK-1111GBR00037

PATIENT
  Age: 75 Year
  Sex: Male
  Weight: 86 kg

DRUGS (11)
  1. AMLODIPINE [Concomitant]
     Route: 065
     Dates: start: 20110802
  2. ENALAPRIL MALEATE [Concomitant]
     Route: 048
     Dates: start: 20110704
  3. METFORMIN [Concomitant]
     Route: 065
     Dates: start: 20110704
  4. ASPIRIN [Concomitant]
     Route: 065
     Dates: start: 20110802
  5. ATORVASTATIN [Concomitant]
     Route: 065
     Dates: start: 20110802
  6. ZETIA [Suspect]
     Route: 048
  7. ALLOPURINOL [Concomitant]
     Route: 065
     Dates: start: 20110802
  8. LANSOPRAZOLE [Concomitant]
     Route: 065
     Dates: start: 20110704, end: 20110927
  9. WARFARIN SODIUM [Concomitant]
     Route: 065
     Dates: start: 20110704, end: 20110704
  10. DIGOXIN [Concomitant]
     Route: 065
     Dates: start: 20110802
  11. SOTALOL HYDROCHLORIDE [Concomitant]
     Route: 065
     Dates: start: 20110704

REACTIONS (3)
  - PROSTATE CANCER [None]
  - BLADDER NEOPLASM [None]
  - HAEMATURIA [None]
